FAERS Safety Report 17355895 (Version 2)
Quarter: 2021Q2

REPORT INFORMATION
  Report Type: Spontaneous
  Country: CA (occurrence: CA)
  Receive Date: 20200131
  Receipt Date: 20210428
  Transmission Date: 20210716
  Serious: Yes (Other)
  Sender: FDA-Public Use
  Company Number: CA-SAMSUNG BIOEPIS-SB-2020-02827

PATIENT
  Age: 31 Year
  Sex: Male

DRUGS (4)
  1. MERCAPTOPURINE. [Concomitant]
     Active Substance: MERCAPTOPURINE
     Route: 065
  2. MERCAPTOPURINE. [Concomitant]
     Active Substance: MERCAPTOPURINE
     Indication: PRODUCT USED FOR UNKNOWN INDICATION
     Route: 065
  3. PREDNISONE. [Concomitant]
     Active Substance: PREDNISONE
     Indication: PRODUCT USED FOR UNKNOWN INDICATION
     Dosage: UNKNOWN
     Route: 065
  4. INFLIXIMAB [Suspect]
     Active Substance: INFLIXIMAB
     Indication: CROHN^S DISEASE
     Route: 042

REACTIONS (8)
  - Blood pressure fluctuation [Recovered/Resolved]
  - Ophthalmic herpes zoster [Recovered/Resolved]
  - Off label use [Recovered/Resolved]
  - Herpes zoster [Recovered/Resolved]
  - Product use issue [Recovered/Resolved]
  - Weight decreased [Recovered/Resolved]
  - Intentional product use issue [Recovered/Resolved]
  - Sinusitis [Recovered/Resolved]
